FAERS Safety Report 13977385 (Version 1)
Quarter: 2017Q3

REPORT INFORMATION
  Report Type: Spontaneous
  Country: US (occurrence: US)
  Receive Date: 20170914
  Receipt Date: 20170914
  Transmission Date: 20171128
  Serious: No
  Sender: FDA-Public Use
  Company Number: US-ASTELLAS-2017US022500

PATIENT
  Sex: Male

DRUGS (1)
  1. XTANDI [Suspect]
     Active Substance: ENZALUTAMIDE
     Indication: PRODUCT USED FOR UNKNOWN INDICATION
     Route: 065
     Dates: start: 201607, end: 20170530

REACTIONS (10)
  - Joint injury [Unknown]
  - Swelling [Unknown]
  - Musculoskeletal chest pain [Unknown]
  - Fall [Unknown]
  - Underdose [Unknown]
  - Limb discomfort [Unknown]
  - Contusion [Unknown]
  - Fatigue [Unknown]
  - Movement disorder [Unknown]
  - Decreased appetite [Unknown]
